FAERS Safety Report 8052068-1 (Version None)
Quarter: 2012Q1

REPORT INFORMATION
  Report Type: 
  Country: None (occurrence: None)
  Receive Date: 20120118
  Receipt Date: 20120107
  Transmission Date: 20120608
  Serious: Yes (Death, Other)
  Sender: FDA-Public Use
  Company Number: IR-GENZYME-THYM-1003072

PATIENT
  Age: 40 Year
  Sex: Female
  Weight: 67 kg

DRUGS (3)
  1. THYMOGLOBULIN [Suspect]
     Indication: PROPHYLAXIS AGAINST TRANSPLANT REJECTION
     Dosage: 1.5 MG/KG
     Route: 042
     Dates: start: 20111217, end: 20111220
  2. MYCOPHENOLATE MOFETIL (CELLCEPT) [Concomitant]
     Indication: PRODUCT USED FOR UNKNOWN INDICATION
     Dosage: 500 MG, UNK
     Route: 065
  3. CORTICOSTEROID NOS [Concomitant]
     Indication: PRODUCT USED FOR UNKNOWN INDICATION
     Dosage: 1 MG/KG, UNK
     Route: 065

REACTIONS (3)
  - RENAL TUBULAR NECROSIS [None]
  - CARDIAC ARREST [None]
  - CONVULSION [None]
